FAERS Safety Report 6844546-5 (Version None)
Quarter: 2010Q3

REPORT INFORMATION
  Report Type: 
  Country: None (occurrence: None)
  Receive Date: 20100715
  Receipt Date: 20100630
  Transmission Date: 20110219
  Serious: Yes (Hospitalization, Disabling, Other)
  Sender: FDA-Public Use
  Company Number: PHEH2006US13646

PATIENT
  Sex: Male

DRUGS (22)
  1. ZOMETA [Suspect]
  2. TAMOXIFEN [Concomitant]
  3. NAVELBINE [Concomitant]
  4. FASLODEX [Concomitant]
  5. HERCEPTIN [Concomitant]
  6. PROCRIT [Concomitant]
  7. LUPRON [Concomitant]
  8. XELODA [Concomitant]
  9. ARIMIDEX [Concomitant]
  10. ACTOPLUS MET [Concomitant]
     Dosage: 150/500, 2 ONCE DAILY
  11. MUCINEX DM [Concomitant]
     Dosage: UNK, ONCE DAILY
  12. SENNA-S (DOCUSATE SODIUM/SENNA ALEXANDRINA) [Concomitant]
     Dosage: UNK, 2 BID
  13. METFORMIN HCL [Concomitant]
     Dosage: 100MG, ONCE DAILY
  14. PREVACID [Concomitant]
     Dosage: 30MG, ONCE DAILY
  15. SYNTHROID [Concomitant]
     Dosage: 88MG, ONCE DAILY
  16. LISINOPRIL [Concomitant]
     Dosage: 10MG, ONCE DAILY
  17. LORAZEPAM [Concomitant]
     Dosage: 3MG, AT BED TIME
  18. LIPITOR [Concomitant]
     Dosage: 20MG, AT BED TIME
  19. LOPID [Concomitant]
     Dosage: 600MG, BID
  20. DIPHENHYDRAMINE [Concomitant]
     Dosage: 75MG, AT BED TIME
  21. PERCOCET [Concomitant]
     Dosage: 5-325MG 2 EVERY 4 HOURS PRN
  22. ASPIRIN [Concomitant]
     Dosage: 325MG, AT BED TIME

REACTIONS (36)
  - ABDOMINAL PAIN [None]
  - ADENOTONSILLECTOMY [None]
  - ANXIETY [None]
  - ASTHMA [None]
  - ATELECTASIS [None]
  - CALCULUS URINARY [None]
  - CAUDA EQUINA SYNDROME [None]
  - DECREASED INTEREST [None]
  - DIABETIC FOOT [None]
  - DYSLIPIDAEMIA [None]
  - ENDODONTIC PROCEDURE [None]
  - GASTROINTESTINAL HAEMORRHAGE [None]
  - GENERAL PHYSICAL HEALTH DETERIORATION [None]
  - HAEMOGLOBIN DECREASED [None]
  - HEPATIC STEATOSIS [None]
  - HYPERSOMNIA [None]
  - IMPAIRED HEALING [None]
  - INFECTED SKIN ULCER [None]
  - LYMPHADENOPATHY [None]
  - LYMPHOCYTE PERCENTAGE DECREASED [None]
  - OROPHARYNGEAL PAIN [None]
  - OSTEONECROSIS OF JAW [None]
  - PAIN [None]
  - PAIN IN JAW [None]
  - PALPITATIONS [None]
  - PRODUCTIVE COUGH [None]
  - PYREXIA [None]
  - RED BLOOD CELL COUNT DECREASED [None]
  - RHINITIS ALLERGIC [None]
  - SLEEP APNOEA SYNDROME [None]
  - SNORING [None]
  - SOMNOLENCE [None]
  - TACHYCARDIA [None]
  - TOOTH EXTRACTION [None]
  - TOOTH FRACTURE [None]
  - WHEEZING [None]
